FAERS Safety Report 9343299 (Version 3)
Quarter: 2014Q1

REPORT INFORMATION
  Report Type: Spontaneous
  Country: AR (occurrence: AR)
  Receive Date: 20130612
  Receipt Date: 20140210
  Transmission Date: 20141002
  Serious: Yes (Hospitalization, Other)
  Sender: FDA-Public Use
  Company Number: AR-AMGEN-ARGSP2013040691

PATIENT
  Age: 52 Year
  Sex: Female

DRUGS (7)
  1. ENBREL [Suspect]
     Indication: RHEUMATOID ARTHRITIS
     Dosage: 50 MG, WEEKLY
     Route: 065
     Dates: start: 20071010
  2. GLUCOSAMINE [Concomitant]
     Indication: OSTEOARTHRITIS
     Dosage: UNK
  3. LOTRIAL                            /00574902/ [Concomitant]
     Indication: HYPERTENSION
     Dosage: UNK
  4. HYDROXYCHLOROQUINE [Concomitant]
     Dosage: 200 MG, 1X/DAY
  5. LEFLUNOMIDE [Concomitant]
     Dosage: 20 MG, 1X/DAY
  6. METHOTREXATE SODIUM [Concomitant]
     Dosage: 10 MG, WEEKLY
  7. FOLIC ACID [Concomitant]
     Dosage: 10 MG, WEEKLY

REACTIONS (8)
  - Systemic lupus erythematosus [Recovered/Resolved]
  - Arthropathy [Recovered/Resolved]
  - Hernia [Recovered/Resolved]
  - Foot deformity [Recovered/Resolved]
  - Bunion [Recovered/Resolved]
  - Osteoarthritis [Recovered/Resolved]
  - Decreased immune responsiveness [Unknown]
  - Infection [Unknown]
